FAERS Safety Report 9377825 (Version 1)
Quarter: 2013Q2

REPORT INFORMATION
  Report Type: Spontaneous
  Country: US (occurrence: None)
  Receive Date: 20130625
  Receipt Date: 20130625
  Transmission Date: 20140414
  Serious: Yes (Hospitalization, Disabling, Other)
  Sender: FDA-Public Use
  Company Number: ALK-2013-001586

PATIENT
  Age: 47 Year
  Sex: Male
  Weight: 76.6 kg

DRUGS (8)
  1. VIVITROL [Suspect]
     Indication: DRUG DEPENDENCE
     Dosage: , QMO
     Route: 030
     Dates: start: 201212
  2. BURANS (BUPRENRPHINE) [Concomitant]
  3. TROPROL-XL (METOPROLOL SUCCINATE) [Concomitant]
  4. SYMBICORT (BUDESONIDE, FORMOTEROL FUMARATE DIHYDRATE) [Concomitant]
  5. NALTREXONE (NALTREXONE) [Concomitant]
  6. IBUPROFEN (IBUPROFEN) [Concomitant]
  7. VERAPAMIL (VERAPAMIL) [Concomitant]
  8. XANAX (APRAZOLAM) [Concomitant]

REACTIONS (24)
  - Nerve compression [None]
  - Hypoaesthesia [None]
  - Paraesthesia [None]
  - Penis disorder [None]
  - Anal sphincter atony [None]
  - Urinary hesitation [None]
  - Flatulence [None]
  - Scrotal disorder [None]
  - Encopresis [None]
  - Urinary retention [None]
  - Defaecation urgency [None]
  - Ejaculation failure [None]
  - Neurological symptom [None]
  - Drug administered at inappropriate site [None]
  - Injection site anaesthesia [None]
  - Injection site paraesthesia [None]
  - Gait disturbance [None]
  - Injection site pain [None]
  - Discomfort [None]
  - Injection site reaction [None]
  - Injection site swelling [None]
  - Injection site haematoma [None]
  - Injection site erythema [None]
  - Pain in extremity [None]
